FAERS Safety Report 16990570 (Version 2)
Quarter: 2020Q3

REPORT INFORMATION
  Report Type: Spontaneous
  Country: JP (occurrence: JP)
  Receive Date: 20191104
  Receipt Date: 20200812
  Transmission Date: 20201102
  Serious: Yes (Death, Hospitalization, Disabling, Other)
  Sender: FDA-Public Use
  Company Number: JP-ASTRAZENECA-2019SF56144

PATIENT
  Age: 27601 Day
  Sex: Male
  Weight: 44 kg

DRUGS (3)
  1. TAGRISSO [Suspect]
     Active Substance: OSIMERTINIB
     Indication: NON-SMALL CELL LUNG CANCER
     Route: 048
     Dates: start: 20190827, end: 20191009
  2. BAKTAR [Concomitant]
     Active Substance: SULFAMETHOXAZOLE\TRIMETHOPRIM
  3. BONALON [Concomitant]
     Active Substance: ALENDRONATE SODIUM

REACTIONS (15)
  - Dizziness [Unknown]
  - Blood creatine phosphokinase increased [Unknown]
  - Lung disorder [Recovered/Resolved with Sequelae]
  - Tremor [Unknown]
  - Fall [Unknown]
  - Musculoskeletal discomfort [Unknown]
  - Pneumothorax [Not Recovered/Not Resolved]
  - Procalcitonin abnormal [Unknown]
  - Bundle branch block right [Unknown]
  - Cardio-respiratory arrest [Fatal]
  - Troponin increased [Unknown]
  - Inflammation [Unknown]
  - Respiratory failure [Unknown]
  - Faeces discoloured [Unknown]
  - Bacterial infection [Unknown]

NARRATIVE: CASE EVENT DATE: 20191009
